FAERS Safety Report 5194532-9 (Version None)
Quarter: 2006Q4

REPORT INFORMATION
  Report Type: 
  Country: None (occurrence: None)
  Receive Date: 20061222
  Receipt Date: 20060608
  Transmission Date: 20070319
  Serious: Yes (Death)
  Sender: FDA-Public Use
  Company Number: ENTC2006-0157

PATIENT
  Age: 64 Year
  Sex: Male

DRUGS (3)
  1. STALEVO 100 [Suspect]
     Indication: PARKINSON'S DISEASE
     Dosage: 400 MG (100 MG, 4 IN 1) ORAL
     Route: 048
     Dates: start: 20060103
  2. ASPIRIN [Concomitant]
  3. MADOPAR [Concomitant]

REACTIONS (1)
  - COMPLETED SUICIDE [None]
